APPROVED DRUG PRODUCT: UNASYN
Active Ingredient: AMPICILLIN SODIUM; SULBACTAM SODIUM
Strength: EQ 1GM BASE/VIAL;EQ 500MG BASE/VIAL
Dosage Form/Route: INJECTABLE;INJECTION
Application: A062901 | Product #001
Applicant: PFIZER LABORATORIES DIV PFIZER INC
Approved: Nov 23, 1988 | RLD: No | RS: No | Type: DISCN